FAERS Safety Report 24450603 (Version 4)
Quarter: 2024Q4

REPORT INFORMATION
  Report Type: Report from Study
  Country: US (occurrence: US)
  Receive Date: 20241017
  Receipt Date: 20241107
  Transmission Date: 20250115
  Serious: Yes (Hospitalization, Other)
  Sender: ABBVIE
  Company Number: US-ABBVIE-5964654

PATIENT
  Age: 61 Year
  Sex: Male
  Weight: 68 kg

DRUGS (12)
  1. CREON [Suspect]
     Active Substance: PANCRELIPASE AMYLASE\PANCRELIPASE LIPASE\PANCRELIPASE PROTEASE
     Indication: Pancreatic failure
     Dosage: FORM STRENGTH: 24000 UNIT 2 CAPS EACH AND 1 CAP EACH SNACK
     Route: 048
     Dates: start: 202307
  2. CREON [Suspect]
     Active Substance: PANCRELIPASE AMYLASE\PANCRELIPASE LIPASE\PANCRELIPASE PROTEASE
     Indication: Pancreatic failure
     Route: 048
     Dates: start: 20231001
  3. XANAX [Concomitant]
     Active Substance: ALPRAZOLAM
     Indication: Psychiatric care
  4. PAXIL [Concomitant]
     Active Substance: PAROXETINE HYDROCHLORIDE
     Indication: Psychiatric care
  5. LAMOTRIGINE [Concomitant]
     Active Substance: LAMOTRIGINE
     Indication: Psychiatric care
  6. FENOFIBRATE S [Concomitant]
     Indication: Blood triglycerides abnormal
  7. METOPROLOL [Concomitant]
     Active Substance: METOPROLOL
     Indication: Blood pressure management
  8. ASPIRIN [Concomitant]
     Active Substance: ASPIRIN
     Indication: Anticoagulant therapy
  9. LIPITOR [Concomitant]
     Active Substance: ATORVASTATIN CALCIUM
     Indication: Blood cholesterol abnormal
  10. DICYCLOMINE [Concomitant]
     Active Substance: DICYCLOMINE HYDROCHLORIDE
     Indication: Diarrhoea
  11. CLOMID [Concomitant]
     Active Substance: CLOMIPHENE CITRATE
     Indication: Blood testosterone abnormal
  12. ZYPREXA [Concomitant]
     Active Substance: OLANZAPINE
     Indication: Psychiatric care

REACTIONS (6)
  - Pancreatic carcinoma [Not Recovered/Not Resolved]
  - Diarrhoea [Unknown]
  - Abnormal faeces [Unknown]
  - Fatigue [Unknown]
  - Malaise [Unknown]
  - Arthritis [Not Recovered/Not Resolved]

NARRATIVE: CASE EVENT DATE: 20241007
